FAERS Safety Report 11294928 (Version 1)
Quarter: 2015Q3

REPORT INFORMATION
  Report Type: Spontaneous
  Country: US (occurrence: None)
  Receive Date: 20150722
  Receipt Date: 20150722
  Transmission Date: 20151125
  Serious: Yes (Disabling)
  Sender: FDA-Public Use
  Company Number: None

PATIENT
  Age: 19 Year
  Sex: Female
  Weight: 68.04 kg

DRUGS (3)
  1. B-12 VITAMINS [Concomitant]
  2. PASSION FLOWER VITAMINS [Concomitant]
  3. NEXPLANON [Suspect]
     Active Substance: ETONOGESTREL

REACTIONS (18)
  - Mood swings [None]
  - Hypoaesthesia [None]
  - Fear [None]
  - Fear of disease [None]
  - Anxiety [None]
  - Depression [None]
  - Insomnia [None]
  - Weight decreased [None]
  - Hot flush [None]
  - Irritability [None]
  - Hyperhidrosis [None]
  - Headache [None]
  - Vision blurred [None]
  - Obsessive thoughts [None]
  - Dizziness [None]
  - Paranoia [None]
  - Decreased appetite [None]
  - Depersonalisation [None]
